FAERS Safety Report 7479595-X (Version None)
Quarter: 2011Q2

REPORT INFORMATION
  Report Type: 
  Country: None (occurrence: None)
  Receive Date: 20110513
  Receipt Date: 20081115
  Transmission Date: 20111010
  Serious: Yes (Hospitalization, Other)
  Sender: FDA-Public Use
  Company Number: US-BAYER-200838637NA

PATIENT
  Age: 57 Year
  Sex: Female
  Weight: 58.503 kg

DRUGS (13)
  1. PLATELETS [Concomitant]
     Dosage: 15 U, UNK
     Dates: start: 20040110
  2. HESPAN IN EXCEL PLASTIC CONTAINER [Concomitant]
     Dosage: 1 L, UNK
     Dates: start: 20040110
  3. TRASYLOL [Suspect]
     Indication: AORTIC VALVE REPLACEMENT
     Dosage: 200 ML, ONCE, OVER 30 MINUTES
     Dates: start: 20040110
  4. PLASMA [Concomitant]
     Dosage: 6 U, UNK
     Dates: start: 20040110
  5. RED BLOOD CELLS [Concomitant]
     Dosage: 5 U, UNK
     Dates: start: 20040110
  6. DOPAMINE HCL [Concomitant]
     Dosage: UNK
     Dates: start: 20040110
  7. CARDENE [Concomitant]
     Dosage: UNK
     Dates: start: 20040110
  8. EPINEPHRINE [Concomitant]
     Dosage: UNK
     Dates: start: 20040110
  9. NITROGLYCERIN [Concomitant]
     Dosage: UNK
     Dates: start: 20040110
  10. TRASYLOL [Suspect]
     Indication: CARDIAC OPERATION
     Dosage: 1 ML, INITIAL TEST DOSE
     Route: 042
     Dates: start: 20040110
  11. TRASYLOL [Suspect]
     Dosage: 50 ML, Q1HR
     Dates: start: 20040110
  12. LEVOPHED [Concomitant]
     Dosage: UNK
     Dates: start: 20040110
  13. CRYOPRECIPITATES [Concomitant]
     Dosage: 1 POOL, UNK
     Dates: start: 20040110

REACTIONS (5)
  - UNEVALUABLE EVENT [None]
  - RENAL FAILURE ACUTE [None]
  - INJURY [None]
  - RENAL FAILURE [None]
  - PAIN [None]
